FAERS Safety Report 9135384 (Version 1)
Quarter: 2013Q1

REPORT INFORMATION
  Report Type: Spontaneous
  Country: US (occurrence: US)
  Receive Date: 20130304
  Receipt Date: 20130304
  Transmission Date: 20140127
  Serious: No
  Sender: FDA-Public Use
  Company Number: US-ENDO PHARMACEUTICALS INC.-ENDC20110149

PATIENT
  Age: 40 Year
  Sex: Male

DRUGS (4)
  1. ENDOCET 10MG/325MG [Suspect]
     Indication: PAIN MANAGEMENT
     Dosage: UNKNOWN
     Route: 048
     Dates: start: 20110513, end: 20110527
  2. PERCOCET 10MG/325MG [Concomitant]
     Indication: PAIN MANAGEMENT
     Dosage: UNKNOWN
     Route: 048
     Dates: start: 200711
  3. METOPROLOL [Concomitant]
     Indication: HYPERTENSION
     Route: 048
     Dates: start: 2002
  4. LISINOPRIL [Concomitant]
     Indication: HYPERTENSION
     Route: 048

REACTIONS (4)
  - Local swelling [Recovered/Resolved]
  - Joint swelling [Recovered/Resolved]
  - Rash [Recovered/Resolved]
  - Urticaria [Recovered/Resolved]
